FAERS Safety Report 8798378 (Version 3)
Quarter: 2012Q4

REPORT INFORMATION
  Report Type: Spontaneous
  Country: US (occurrence: None)
  Receive Date: 20120914
  Receipt Date: 20121011
  Transmission Date: 20130627
  Serious: Yes (Hospitalization)
  Sender: FDA-Public Use
  Company Number: 2012-0833

PATIENT
  Age: 62 Year
  Sex: Male

DRUGS (5)
  1. KYPROLIS (CARFILZOMIB) (20 MILLIGRAM(S) /SQ. METER, INJECTION FOR INFUSION) (CARFILZOMIB) [Suspect]
     Indication: MULTIPLE MYELOMA
     Dosage: 12.2857 mg (43 mg, 2 in 1 wk), Intravenous
     Dates: start: 20120823, end: 20120906
  2. PROTONIX (PANTOPRAZOLE SODIUM SESQUIHYDRATE) (PANTOPRAZOLE SODIUM SESQUIHYDRATE) [Concomitant]
  3. NORVASC (AMLODIPINE BESILATE) (AMLODIPINE BESILATE) [Concomitant]
  4. VALTREX (VALACICLOVIR HYDROCHLORIDE) (VALACICLOVIR HYDROCHLORIDE) [Concomitant]
  5. K-PHOS (POTASSIUM PHOSPHATE MONOBASIC) (POTASSIUM PHOSPHATE MONOBASIC) [Concomitant]

REACTIONS (11)
  - Platelet count decreased [None]
  - Anaphylactic reaction [None]
  - Visual acuity reduced [None]
  - Loss of consciousness [None]
  - Transfusion related complication [None]
  - Chills [None]
  - Diarrhoea [None]
  - Nausea [None]
  - Vomiting [None]
  - Clostridium test positive [None]
  - Disease progression [None]
